FAERS Safety Report 10138384 (Version 2)
Quarter: 2014Q2

REPORT INFORMATION
  Report Type: Spontaneous
  Country: US (occurrence: US)
  Receive Date: 20140429
  Receipt Date: 20140429
  Transmission Date: 20141212
  Serious: No
  Sender: FDA-Public Use
  Company Number: US-009507513-1404USA014062

PATIENT
  Sex: Male
  Weight: 2.13 kg

DRUGS (2)
  1. SINGULAIR [Suspect]
     Indication: HYPERSENSITIVITY
     Dosage: 5 MG/ ONCE DAILY
     Route: 064
     Dates: start: 2011, end: 201403
  2. SYNTHROID [Concomitant]
     Route: 064

REACTIONS (3)
  - Premature baby [Recovered/Resolved]
  - Small for dates baby [Recovered/Resolved]
  - Foetal exposure during pregnancy [Unknown]
